FAERS Safety Report 9333905 (Version 1)
Quarter: 2013Q2

REPORT INFORMATION
  Report Type: Spontaneous
  Country: US (occurrence: US)
  Receive Date: 20130606
  Receipt Date: 20130606
  Transmission Date: 20140414
  Serious: No
  Sender: FDA-Public Use
  Company Number: US-AMGEN-USASP2013000416

PATIENT
  Age: 72 Year
  Sex: Female
  Weight: 51.7 kg

DRUGS (2)
  1. PROLIA [Suspect]
     Indication: OSTEOPOROSIS POSTMENOPAUSAL
     Dosage: 60 MG, Q6MO
     Route: 058
     Dates: start: 20110208
  2. ADVAIR [Suspect]
     Indication: ASTHMA
     Dosage: UNK
     Dates: start: 2008

REACTIONS (1)
  - Blood cholesterol increased [Unknown]
